FAERS Safety Report 7505836-6 (Version None)
Quarter: 2011Q2

REPORT INFORMATION
  Report Type: 
  Country: None (occurrence: None)
  Receive Date: 20110526
  Receipt Date: 20110516
  Transmission Date: 20111010
  Serious: Yes (Hospitalization, Other)
  Sender: FDA-Public Use
  Company Number: US-ELI_LILLY_AND_COMPANY-US201103002899

PATIENT
  Sex: Female
  Weight: 85.261 kg

DRUGS (5)
  1. SYNTHROID [Concomitant]
     Dosage: 150 UG, UNK
  2. VITAMIN D [Concomitant]
  3. NEXIUM [Concomitant]
     Dosage: 40 MG, UNK
  4. EVISTA [Suspect]
     Indication: OSTEOPENIA
     Dosage: 60 MG, DAILY (1/D)
     Route: 048
     Dates: start: 20100503
  5. CALCIUM CARBONATE [Concomitant]

REACTIONS (1)
  - CEREBROVASCULAR ACCIDENT [None]
